FAERS Safety Report 5489448-4 (Version None)
Quarter: 2007Q4

REPORT INFORMATION
  Report Type: 
  Country: None (occurrence: None)
  Receive Date: 20071016
  Receipt Date: 20071016
  Transmission Date: 20080405
  Serious: Yes (Hospitalization)
  Sender: FDA-Public Use
  Company Number: None

PATIENT
  Age: 60 Year
  Sex: Male

DRUGS (2)
  1. DILTIAZEM [Suspect]
     Indication: ATRIAL FIBRILLATION
     Dosage: 240MG  EVERY DAY  PO
     Route: 048
     Dates: start: 20060717
  2. DIGOXIN [Suspect]
     Dosage: 0.125MG  EVERY DAY  PO
     Route: 048
     Dates: start: 20060817

REACTIONS (1)
  - BRADYCARDIA [None]
